FAERS Safety Report 11114776 (Version 1)
Quarter: 2015Q2

REPORT INFORMATION
  Report Type: Spontaneous
  Country: US (occurrence: US)
  Receive Date: 20150515
  Receipt Date: 20150515
  Transmission Date: 20150821
  Serious: Yes (Hospitalization)
  Sender: FDA-Public Use
  Company Number: US-009507513-1505USA002759

PATIENT

DRUGS (1)
  1. SINEMET [Suspect]
     Active Substance: CARBIDOPA\LEVODOPA
     Dosage: 12.5MG/50MG ONE AND HALF TABLETS,DAILY
     Route: 048

REACTIONS (2)
  - Incorrect dose administered [Unknown]
  - Adverse event [Unknown]
